FAERS Safety Report 19585032 (Version 2)
Quarter: 2021Q4

REPORT INFORMATION
  Report Type: Report from Study
  Country: FR (occurrence: FR)
  Receive Date: 20210720
  Receipt Date: 20211110
  Transmission Date: 20220304
  Serious: Yes (Hospitalization, Other)
  Sender: FDA-Public Use
  Company Number: FR-PFIZER INC-2018463024

PATIENT
  Age: 19 Year
  Sex: Female
  Weight: 56 kg

DRUGS (5)
  1. ETOPOSIDE [Suspect]
     Active Substance: ETOPOSIDE
     Indication: Stem cell transplant
     Dosage: 60 MILLIGRAM/KILOGRAM, QD, 60 MG/KG, 1X/DAY
     Route: 042
     Dates: start: 201808
  2. BESPONSA [Suspect]
     Active Substance: INOTUZUMAB OZOGAMICIN
     Indication: Acute lymphocytic leukaemia
     Dosage: 0.82 MG, CYCLIC (ON DAY 8 AND 14)
     Route: 042
     Dates: start: 20180814, end: 20180821
  3. BESPONSA [Suspect]
     Active Substance: INOTUZUMAB OZOGAMICIN
     Dosage: 1.26 MG, CYCLIC (DAY 1)
     Route: 042
     Dates: start: 20180807, end: 20180807
  4. BESPONSA [Suspect]
     Active Substance: INOTUZUMAB OZOGAMICIN
     Dosage: 0.8 MG/M2,CYCLIC (ON DAY 1, THEN 0.5 MG/M2 ON DAY 8 AND ON DAY 15)
     Route: 042
     Dates: start: 20180219
  5. METHOTREXATE SODIUM [Concomitant]
     Active Substance: METHOTREXATE SODIUM
     Dosage: 10 MG/M2, UNK
     Route: 042
     Dates: start: 20180901

REACTIONS (1)
  - Venoocclusive liver disease [Not Recovered/Not Resolved]

NARRATIVE: CASE EVENT DATE: 20180911
